FAERS Safety Report 12438242 (Version 1)
Quarter: 2016Q2

REPORT INFORMATION
  Report Type: Report from Study
  Country: BR (occurrence: BR)
  Receive Date: 20160606
  Receipt Date: 20160606
  Transmission Date: 20160815
  Serious: Yes (Other)
  Sender: FDA-Public Use
  Company Number: PHHY2016BR076637

PATIENT
  Sex: Male

DRUGS (2)
  1. DIOVAN [Suspect]
     Active Substance: VALSARTAN
     Indication: PRODUCT USED FOR UNKNOWN INDICATION
     Dosage: 160 MG, UNK
     Route: 048
  2. DIOVAN [Suspect]
     Active Substance: VALSARTAN
     Dosage: 320 MG, BID
     Route: 065

REACTIONS (6)
  - Diabetes mellitus [Unknown]
  - Drug ineffective [Unknown]
  - Memory impairment [Unknown]
  - Aneurysm [Unknown]
  - Cerebrovascular accident [Unknown]
  - Blood pressure increased [Unknown]
